FAERS Safety Report 7796262-3 (Version None)
Quarter: 2011Q4

REPORT INFORMATION
  Report Type: 
  Country: None (occurrence: None)
  Receive Date: 20111004
  Receipt Date: 20110927
  Transmission Date: 20120403
  Serious: Yes (Other)
  Sender: FDA-Public Use
  Company Number: US-AMGEN-USASP2011046997

PATIENT
  Age: 63 Year
  Sex: Female
  Weight: 56.689 kg

DRUGS (5)
  1. CYMBALTA [Concomitant]
  2. VITAMIN D [Concomitant]
  3. PROLIA [Suspect]
     Indication: OSTEOPOROSIS POSTMENOPAUSAL
     Route: 058
     Dates: start: 20110831
  4. MIRAPEX [Concomitant]
  5. CALCIUM CARBONATE [Concomitant]

REACTIONS (5)
  - APHAGIA [None]
  - MOBILITY DECREASED [None]
  - BACK PAIN [None]
  - MUSCULAR WEAKNESS [None]
  - INCONTINENCE [None]
